FAERS Safety Report 17952148 (Version 1)
Quarter: 2020Q2

REPORT INFORMATION
  Report Type: Spontaneous
  Country: US (occurrence: US)
  Receive Date: 20200626
  Receipt Date: 20200626
  Transmission Date: 20200714
  Serious: Yes (Other)
  Sender: FDA-Public Use
  Company Number: US-ASTRAZENECA-2020SE79899

PATIENT
  Sex: Male

DRUGS (1)
  1. BYDUREON BCISE [Suspect]
     Active Substance: EXENATIDE
     Indication: TYPE 2 DIABETES MELLITUS
     Dosage: 2MG/ML ONCE A WEEK
     Route: 058

REACTIONS (4)
  - Product dose omission [Unknown]
  - Device leakage [Unknown]
  - Blood glucose increased [Unknown]
  - Intentional device misuse [Not Recovered/Not Resolved]
